FAERS Safety Report 9735083 (Version 3)
Quarter: 2014Q1

REPORT INFORMATION
  Report Type: Report from Study
  Country: HU (occurrence: HU)
  Receive Date: 20131206
  Receipt Date: 20140305
  Transmission Date: 20141002
  Serious: Yes (Hospitalization)
  Sender: FDA-Public Use
  Company Number: HU-ABBVIE-13P-076-1066525-00

PATIENT
  Age: 26 Year
  Sex: Male
  Weight: 89 kg

DRUGS (5)
  1. HUMIRA [Suspect]
     Indication: COLITIS ULCERATIVE
     Route: 058
     Dates: start: 20090325, end: 20121114
  2. HUMIRA [Suspect]
     Route: 058
     Dates: start: 20121212
  3. SALOFALK [Concomitant]
     Indication: COLITIS ULCERATIVE
     Dates: start: 20071127
  4. LANSONE [Concomitant]
     Indication: GASTROOESOPHAGEAL REFLUX DISEASE
     Dates: start: 20090408
  5. BEPANTHEN [Concomitant]
     Indication: FOLLICULITIS
     Dates: start: 20120222

REACTIONS (1)
  - Pseudopolyposis [Not Recovered/Not Resolved]
